FAERS Safety Report 21855921 (Version 2)
Quarter: 2024Q2

REPORT INFORMATION
  Report Type: Report from Study
  Country: US (occurrence: US)
  Receive Date: 20230112
  Receipt Date: 20240401
  Transmission Date: 20240715
  Serious: No
  Sender: FDA-Public Use
  Company Number: US-ABBVIE-4226625

PATIENT
  Sex: Male

DRUGS (2)
  1. SKYRIZI [Suspect]
     Active Substance: RISANKIZUMAB-RZAA
     Indication: Psoriasis
     Dosage: WEEK ZERO?FORM STRENGTH: 150 MILLIGRAM
     Route: 058
     Dates: start: 20220512, end: 20220512
  2. SKYRIZI [Suspect]
     Active Substance: RISANKIZUMAB-RZAA
     Dosage: WEEK FOUR AND EVERY 12 WEEKS THEREAFTER?EVENT ONSET DATE 2022?FORM STRENGTH: 150 MILLIGRAM
     Route: 058

REACTIONS (1)
  - Off label use [Unknown]
